FAERS Safety Report 20938122 (Version 1)
Quarter: 2022Q2

REPORT INFORMATION
  Report Type: Spontaneous
  Country: US (occurrence: US)
  Receive Date: 20220609
  Receipt Date: 20220609
  Transmission Date: 20220721
  Serious: Yes (Other)
  Sender: FDA-Public Use
  Company Number: US-MYLANLABS-2022M1042664

PATIENT
  Age: 17 Year
  Sex: Male

DRUGS (6)
  1. HALOPERIDOL [Suspect]
     Active Substance: HALOPERIDOL
     Indication: Catatonia
     Dosage: 5 MILLIGRAM
  2. KETAMINE [Suspect]
     Active Substance: KETAMINE
     Indication: Catatonia
     Dosage: 500 MILLIGRAM
     Route: 042
  3. LORAZEPAM [Concomitant]
     Active Substance: LORAZEPAM
     Indication: Catatonia
     Dosage: DOSE TITRATING TO 6MG FOUR TIME A DAY
     Route: 048
  4. LORAZEPAM [Concomitant]
     Active Substance: LORAZEPAM
     Indication: Catatonia
     Dosage: 4 MILLIGRAM
  5. METHYLPHENIDATE [Concomitant]
     Active Substance: METHYLPHENIDATE
     Indication: Catatonia
     Dosage: 30MG AT MORNING AND 20MG AT AFTERNOON
  6. CLONIDINE [Concomitant]
     Active Substance: CLONIDINE
     Indication: Catatonia
     Dosage: 0.2 MILLIGRAM, HS, EVERY NIGHT AT BEDTIME

REACTIONS (2)
  - Drug ineffective for unapproved indication [Unknown]
  - Off label use [Unknown]
